FAERS Safety Report 13487949 (Version 1)
Quarter: 2017Q2

REPORT INFORMATION
  Report Type: Spontaneous
  Country: US (occurrence: US)
  Receive Date: 20170426
  Receipt Date: 20170426
  Transmission Date: 20170830
  Serious: No
  Sender: FDA-Public Use
  Company Number: US-ALKERMES INC.-ALK-2016-002176

PATIENT
  Age: 29 Year
  Sex: Female
  Weight: 109.75 kg

DRUGS (3)
  1. BUPROPION. [Concomitant]
     Active Substance: BUPROPION
     Indication: DEPRESSION
     Dosage: UNK UNK, QD
     Route: 048
  2. COREG [Concomitant]
     Active Substance: CARVEDILOL
     Indication: HYPERTENSION
     Dosage: UNK, BID
     Route: 048
  3. VIVITROL [Suspect]
     Active Substance: NALTREXONE
     Indication: DRUG USE DISORDER
     Dosage: UNK
     Dates: start: 20160717

REACTIONS (1)
  - Secondary hypertension [Not Recovered/Not Resolved]
